FAERS Safety Report 23464625 (Version 1)
Quarter: 2024Q1

REPORT INFORMATION
  Report Type: Report from Study
  Country: CA (occurrence: CA)
  Receive Date: 20240201
  Receipt Date: 20240201
  Transmission Date: 20240410
  Serious: Yes (Hospitalization)
  Sender: FDA-Public Use
  Company Number: CA-JNJFOC-20231151285

PATIENT
  Age: 5 Decade
  Sex: Female

DRUGS (1)
  1. REMICADE [Suspect]
     Active Substance: INFLIXIMAB
     Indication: Crohn^s disease
     Dosage: THE PATIENT RECEIVED 20 INFUSION TOTALLY
     Route: 041
     Dates: start: 20221108

REACTIONS (4)
  - Sepsis [Recovering/Resolving]
  - Device related infection [Recovering/Resolving]
  - Nephrolithiasis [Recovering/Resolving]
  - Blood pressure management [Recovering/Resolving]

NARRATIVE: CASE EVENT DATE: 20230101
